FAERS Safety Report 4881836-X (Version None)
Quarter: 2006Q1

REPORT INFORMATION
  Report Type: 
  Country: None (occurrence: None)
  Receive Date: 20060112
  Receipt Date: 20060112
  Transmission Date: 20060701
  Serious: Yes (Other)
  Sender: FDA-Public Use
  Company Number: None

PATIENT
  Age: 57 Year
  Sex: Male
  Weight: 81.1939 kg

DRUGS (5)
  1. 1% TETRACAINE [Suspect]
     Indication: ANAESTHESIA
     Dosage: 14 MG - SAB
     Dates: start: 20050930
  2. DILAUDID [Concomitant]
  3. ZITHROMAX [Concomitant]
  4. METOPROLOL [Concomitant]
  5. TYLENOL (CAPLET) [Concomitant]

REACTIONS (2)
  - ANAESTHETIC COMPLICATION [None]
  - BLOOD PRESSURE DECREASED [None]
